FAERS Safety Report 12519158 (Version 2)
Quarter: 2017Q1

REPORT INFORMATION
  Report Type: Spontaneous
  Country: IL (occurrence: IL)
  Receive Date: 20160630
  Receipt Date: 20170227
  Transmission Date: 20170428
  Serious: Yes (Other)
  Sender: FDA-Public Use
  Company Number: IL-ASTRAZENECA-2016SE70215

PATIENT
  Sex: Male

DRUGS (2)
  1. TAGRISSO [Suspect]
     Active Substance: OSIMERTINIB
     Indication: NEOPLASM MALIGNANT
     Route: 048
     Dates: start: 20160526
  2. CLEXAN [Concomitant]
     Active Substance: ENOXAPARIN SODIUM
     Indication: VENTRICULAR FIBRILLATION

REACTIONS (4)
  - Vision blurred [Unknown]
  - Nail disorder [Unknown]
  - Pain in extremity [Unknown]
  - Ventricular fibrillation [Unknown]

NARRATIVE: CASE EVENT DATE: 20160621
